FAERS Safety Report 6492130-8 (Version None)
Quarter: 2009Q4

REPORT INFORMATION
  Report Type: 
  Country: None (occurrence: None)
  Receive Date: 20091214
  Receipt Date: 20091202
  Transmission Date: 20100525
  Serious: Yes (Hospitalization, Other)
  Sender: FDA-Public Use
  Company Number: GB-RANBAXY-2009RR-29107

PATIENT
  Age: 71 Year
  Sex: Female

DRUGS (10)
  1. METFORMIN HCL [Suspect]
     Indication: DIABETES MELLITUS
     Dosage: 1 G, BID
  2. GLICLAZIDE [Suspect]
     Indication: DIABETES MELLITUS
     Dosage: 60 MG, BID
  3. ALLOPURINOL [Concomitant]
     Indication: GOUT
     Route: 048
  4. ASPIRIN [Concomitant]
  5. ATENOLOL [Concomitant]
     Route: 048
  6. CLOPIDOGREL [Concomitant]
  7. DOXAZOSIN [Concomitant]
  8. IRBESARTAN [Concomitant]
  9. PERINDOPRIL [Concomitant]
     Route: 048
  10. BENDROFLUMETHIAZIDE [Concomitant]

REACTIONS (5)
  - ALCOHOL INTERACTION [None]
  - DRUG INTERACTION [None]
  - HYPOGLYCAEMIA [None]
  - LACTIC ACIDOSIS [None]
  - RENAL FAILURE ACUTE [None]
